FAERS Safety Report 17899585 (Version 3)
Quarter: 2021Q2

REPORT INFORMATION
  Report Type: Spontaneous
  Country: US (occurrence: US)
  Receive Date: 20200616
  Receipt Date: 20210617
  Transmission Date: 20210717
  Serious: Yes (Other)
  Sender: FDA-Public Use
  Company Number: US-GILEAD-2020-0471448

PATIENT
  Age: 36 Year
  Sex: Male
  Weight: 131.54 kg

DRUGS (23)
  1. DEPAKOTE [Concomitant]
     Active Substance: DIVALPROEX SODIUM
  2. OMEPRAZOLE. [Concomitant]
     Active Substance: OMEPRAZOLE
  3. FAMOTIDINE. [Concomitant]
     Active Substance: FAMOTIDINE
  4. KETOPROFEN. [Concomitant]
     Active Substance: KETOPROFEN
  5. LEVOCARNITINE. [Concomitant]
     Active Substance: LEVOCARNITINE
  6. LEVETIRACETAM. [Concomitant]
     Active Substance: LEVETIRACETAM
  7. FLUTICASONE. [Concomitant]
     Active Substance: FLUTICASONE
  8. TRUVADA [Suspect]
     Active Substance: EMTRICITABINE\TENOFOVIR DISOPROXIL FUMARATE
     Indication: PROPHYLAXIS AGAINST HIV INFECTION
     Dosage: UNK
     Route: 048
     Dates: start: 20160401, end: 201902
  9. LOSARTAN. [Concomitant]
     Active Substance: LOSARTAN
  10. CARBAMAZEPINE. [Concomitant]
     Active Substance: CARBAMAZEPINE
  11. STRIBILD [Suspect]
     Active Substance: COBICISTAT\ELVITEGRAVIR\EMTRICITABINE\TENOFOVIR DISOPROXIL FUMARATE
     Indication: PROPHYLAXIS AGAINST HIV INFECTION
     Dosage: UNK
     Route: 048
     Dates: start: 20160401, end: 201605
  12. PHENOBARBITAL. [Concomitant]
     Active Substance: PHENOBARBITAL
  13. PREDNISONE. [Concomitant]
     Active Substance: PREDNISONE
  14. PHENYTOIN. [Concomitant]
     Active Substance: PHENYTOIN
  15. SEROQUEL [Concomitant]
     Active Substance: QUETIAPINE FUMARATE
  16. ATORVASTATIN [Concomitant]
     Active Substance: ATORVASTATIN
  17. MINOCYCLINE [Concomitant]
     Active Substance: MINOCYCLINE HYDROCHLORIDE
  18. ACETAMINOPHEN. [Concomitant]
     Active Substance: ACETAMINOPHEN
  19. AMOXICILLIN. [Concomitant]
     Active Substance: AMOXICILLIN
  20. TIVICAY [Concomitant]
     Active Substance: DOLUTEGRAVIR SODIUM
  21. ONDANSETRON [Concomitant]
     Active Substance: ONDANSETRON
  22. LORAZEPAM. [Concomitant]
     Active Substance: LORAZEPAM
  23. LOVENOX [LEVOFLOXACIN] [Concomitant]
     Active Substance: LEVOFLOXACIN

REACTIONS (15)
  - Ankle fracture [Recovered/Resolved]
  - Renal cyst [Not Recovered/Not Resolved]
  - Vitamin D deficiency [Recovered/Resolved]
  - Chronic kidney disease [Unknown]
  - Acute kidney injury [Recovered/Resolved]
  - Emotional distress [Unknown]
  - Multiple fractures [Not Recovered/Not Resolved]
  - Fibula fracture [Recovered/Resolved]
  - Dysstasia [Unknown]
  - Blood creatinine increased [Recovered/Resolved]
  - Dizziness [Recovered/Resolved]
  - Diarrhoea [Unknown]
  - Loss of personal independence in daily activities [Unknown]
  - Renal pain [Recovered/Resolved]
  - Pain [Unknown]

NARRATIVE: CASE EVENT DATE: 20171004
